FAERS Safety Report 6612293-0 (Version None)
Quarter: 2010Q1

REPORT INFORMATION
  Report Type: 
  Country: None (occurrence: None)
  Receive Date: 20100302
  Receipt Date: 20100302
  Transmission Date: 20100710
  Serious: No
  Sender: FDA-Public Use
  Company Number: None

PATIENT
  Age: 44 Year
  Sex: Female
  Weight: 43.0917 kg

DRUGS (2)
  1. LUPRON DEPOT [Suspect]
     Indication: MYOMECTOMY
     Dosage: 3.75 MH 1 MONTHLY IM ONE MONTH DOSAGE
     Route: 030
     Dates: start: 20090708, end: 20090708
  2. LUPRON DEPOT [Suspect]
     Indication: UTERINE LEIOMYOMA
     Dosage: 3.75 MH 1 MONTHLY IM ONE MONTH DOSAGE
     Route: 030
     Dates: start: 20090708, end: 20090708

REACTIONS (9)
  - ABDOMINAL DISTENSION [None]
  - ANXIETY [None]
  - DECREASED APPETITE [None]
  - DEPRESSION [None]
  - FLUID RETENTION [None]
  - HYPERTENSION [None]
  - INSOMNIA [None]
  - NEPHROLITHIASIS [None]
  - WAIST CIRCUMFERENCE INCREASED [None]
